FAERS Safety Report 9980120 (Version 1)
Quarter: 2014Q1

REPORT INFORMATION
  Report Type: Report from Study
  Country: US (occurrence: US)
  Receive Date: 20140307
  Receipt Date: 20140307
  Transmission Date: 20141002
  Serious: No
  Sender: FDA-Public Use
  Company Number: US-ABBVIE-13P-163-1174669-00

PATIENT
  Age: 42 Year
  Sex: Female

DRUGS (11)
  1. HUMIRA [Suspect]
     Indication: COLITIS ULCERATIVE
     Dates: start: 20131024
  2. ATENOLOL [Concomitant]
     Indication: HYPERTENSION
  3. LISINOPRIL [Concomitant]
     Indication: HYPERTENSION
  4. HYDROCHLOROTHIAZIDE [Concomitant]
     Indication: HYPERTENSION
  5. LEVOTHYROXINE [Concomitant]
     Indication: HYPOTHYROIDISM
     Dosage: IN THE MORNING
  6. ENTOCORT [Concomitant]
     Indication: COLITIS ULCERATIVE
     Dosage: 3 PILLS IN MORNING
  7. ENTOCORT [Concomitant]
     Indication: ARTHRALGIA
  8. NEURONTIN [Concomitant]
     Indication: BACK DISORDER
     Dosage: 2 IN MORNING AND 3 TABS AT NIGHT
  9. LIALDA [Concomitant]
     Indication: COLITIS ULCERATIVE
     Dosage: AT NIGHT
  10. PRILOSEC [Concomitant]
     Indication: ULCER
     Dosage: 1 TAB IN MORNING AND 1 TAB AT NIGHT
  11. SERTRALINE [Concomitant]
     Indication: DEPRESSION

REACTIONS (1)
  - Inappropriate schedule of drug administration [Recovered/Resolved]
